FAERS Safety Report 7774823-5 (Version None)
Quarter: 2011Q3

REPORT INFORMATION
  Report Type: 
  Country: None (occurrence: None)
  Receive Date: 20110923
  Receipt Date: 20110915
  Transmission Date: 20111222
  Serious: Yes (Other)
  Sender: FDA-Public Use
  Company Number: US-ROCHE-803374

PATIENT
  Sex: Female
  Weight: 71.2 kg

DRUGS (1)
  1. VEMURAFENIB [Suspect]
     Indication: MALIGNANT MELANOMA
     Dosage: LAST DOSE PRIOR TO SAE: 4 SEPTEMBER 2011, FORM: PILLS
     Route: 048
     Dates: start: 20100205

REACTIONS (1)
  - UVEITIS [None]
